FAERS Safety Report 25388464 (Version 1)
Quarter: 2025Q2

REPORT INFORMATION
  Report Type: Spontaneous
  Country: US (occurrence: US)
  Receive Date: 20250603
  Receipt Date: 20250603
  Transmission Date: 20250717
  Serious: No
  Sender: RANBAXY
  Company Number: US-MIMS-SUN-2025-USA-53733

PATIENT

DRUGS (2)
  1. MORPHINE [Suspect]
     Active Substance: MORPHINE
     Indication: Pain
     Dosage: UNK UNK, TID (2 DOSES)
     Route: 065
     Dates: start: 20241210
  2. MORPHINE [Suspect]
     Active Substance: MORPHINE
     Route: 065
     Dates: start: 20250208

REACTIONS (2)
  - Recalled product administered [Unknown]
  - Product quality issue [Unknown]
